FAERS Safety Report 4680393-0 (Version None)
Quarter: 2005Q2

REPORT INFORMATION
  Report Type: 
  Country: None (occurrence: None)
  Receive Date: 20050531
  Receipt Date: 20050218
  Transmission Date: 20051028
  Serious: No
  Sender: FDA-Public Use
  Company Number: WAES 0502USA02552

PATIENT
  Age: 81 Year
  Sex: Female

DRUGS (4)
  1. ZETIA [Suspect]
     Indication: HYPERLIPIDAEMIA
     Dosage: 10 MG/DAILY/PO
     Route: 048
     Dates: start: 20041001, end: 20050215
  2. PLAVIX [Concomitant]
  3. PRAVACHOL [Concomitant]
  4. (THERAPY UNSPECIFIED) [Concomitant]

REACTIONS (2)
  - DYSPNOEA [None]
  - PRURITUS [None]
